FAERS Safety Report 14858539 (Version 3)
Quarter: 2018Q2

REPORT INFORMATION
  Report Type: Spontaneous
  Country: RO (occurrence: RO)
  Receive Date: 20180508
  Receipt Date: 20180518
  Transmission Date: 20180711
  Serious: Yes (Death, Hospitalization)
  Sender: FDA-Public Use
  Company Number: RO-BAUSCH-BL-2018-013340

PATIENT
  Age: 55 Year
  Sex: Female
  Weight: 80 kg

DRUGS (7)
  1. DEXAMETHASONE. [Suspect]
     Active Substance: DEXAMETHASONE
     Indication: PLASMA CELL MYELOMA
     Route: 065
  2. BORTEZOMIB [Suspect]
     Active Substance: BORTEZOMIB
     Route: 065
  3. BORTEZOMIB [Suspect]
     Active Substance: BORTEZOMIB
     Indication: PLASMA CELL MYELOMA
     Route: 065
  4. VELCADE [Suspect]
     Active Substance: BORTEZOMIB
     Indication: PLASMA CELL MYELOMA
     Dosage: THIRD TREATMENT SESSION
     Route: 065
  5. VELCADE [Suspect]
     Active Substance: BORTEZOMIB
     Route: 065
  6. ERTAPENEM. [Suspect]
     Active Substance: ERTAPENEM SODIUM
     Indication: SEPSIS
     Dosage: 1 GRAM DAILY, FROM THE TWENTY-THIRD DAY TO THE END OF HOSPITALISATION
     Route: 065
  7. ERTAPENEM. [Suspect]
     Active Substance: ERTAPENEM SODIUM
     Indication: ESCHERICHIA SEPSIS

REACTIONS (23)
  - Oedema peripheral [Fatal]
  - PCO2 decreased [Fatal]
  - Petechiae [Fatal]
  - Pyrexia [Fatal]
  - Coma [Fatal]
  - Chills [Fatal]
  - Productive cough [Fatal]
  - Vertigo [Fatal]
  - Drug ineffective [Fatal]
  - Purpura [Fatal]
  - Listeria sepsis [Fatal]
  - Pneumonia [Unknown]
  - Inflammation [Fatal]
  - Skin lesion [Fatal]
  - Thrombocytopenia [Fatal]
  - Ecchymosis [Fatal]
  - Immunosuppression [Fatal]
  - Escherichia sepsis [Fatal]
  - Haemodynamic instability [Fatal]
  - Rash erythematous [Fatal]
  - Rash pustular [Fatal]
  - Stomatitis [Fatal]
  - Dysphagia [Fatal]
